FAERS Safety Report 9773083 (Version 2)
Quarter: 2016Q1

REPORT INFORMATION
  Report Type: Spontaneous
  Country: FR (occurrence: FR)
  Receive Date: 20131219
  Receipt Date: 20160318
  Transmission Date: 20160526
  Serious: Yes (Hospitalization)
  Sender: FDA-Public Use
  Company Number: FR-ACTELION-A-CH2013-92621

PATIENT
  Age: 49 Year
  Sex: Female

DRUGS (8)
  1. TRACLEER [Suspect]
     Active Substance: BOSENTAN
     Indication: PULMONARY ARTERIAL HYPERTENSION
     Dosage: 125 MG, BID
     Route: 048
     Dates: start: 200503, end: 20140930
  2. KARDEGIC [Concomitant]
     Active Substance: ASPIRIN LYSINE
     Dosage: 75 MG, UNK
  3. WELLVONE [Concomitant]
     Active Substance: ATOVAQUONE
  4. XANAX [Concomitant]
     Active Substance: ALPRAZOLAM
  5. LASILIX [Concomitant]
     Active Substance: FUROSEMIDE
     Dosage: 10 MG, UNK
  6. SERC [Concomitant]
     Active Substance: BETAHISTINE HYDROCHLORIDE
  7. FLOLAN [Concomitant]
     Active Substance: EPOPROSTENOL SODIUM
  8. MOPRAL [Concomitant]
     Active Substance: OMEPRAZOLE SODIUM

REACTIONS (3)
  - Hepatic cirrhosis [Unknown]
  - Lipase increased [Unknown]
  - Focal nodular hyperplasia [Unknown]

NARRATIVE: CASE EVENT DATE: 2009
